FAERS Safety Report 8167632-9 (Version None)
Quarter: 2012Q1

REPORT INFORMATION
  Report Type: 
  Country: None (occurrence: None)
  Receive Date: 20120221
  Receipt Date: 20120202
  Transmission Date: 20120608
  Serious: No
  Sender: FDA-Public Use
  Company Number: OPER20120059

PATIENT
  Age: 34 Year
  Sex: Female

DRUGS (5)
  1. OPANA [Suspect]
     Indication: BREAKTHROUGH PAIN
     Dosage: 10 MG, TID PRN, ORAL, 120 MG, 2 IN 4 HR, ORAL, 10 MG, TID PRN, ORAL
     Route: 048
     Dates: start: 20080101, end: 20120126
  2. OPANA [Suspect]
     Indication: BREAKTHROUGH PAIN
     Dosage: 10 MG, TID PRN, ORAL, 120 MG, 2 IN 4 HR, ORAL, 10 MG, TID PRN, ORAL
     Route: 048
     Dates: start: 20120101
  3. OPANA [Suspect]
     Indication: BREAKTHROUGH PAIN
     Dosage: 10 MG, TID PRN, ORAL, 120 MG, 2 IN 4 HR, ORAL, 10 MG, TID PRN, ORAL
     Route: 048
     Dates: start: 20120126, end: 20120101
  4. OPANA ER [Suspect]
     Indication: PAIN
     Dosage: 120 MG, 3 IN 1 D, ORAL, 120 MG, 3 IN 1 D, ORAL
     Route: 048
     Dates: start: 20110101, end: 20120126
  5. OPANA ER [Suspect]
     Indication: PAIN
     Dosage: 120 MG, 3 IN 1 D, ORAL, 120 MG, 3 IN 1 D, ORAL
     Route: 048
     Dates: start: 20120101

REACTIONS (8)
  - FEELING OF BODY TEMPERATURE CHANGE [None]
  - VOMITING [None]
  - INADEQUATE ANALGESIA [None]
  - DIARRHOEA [None]
  - DRUG DOSE OMISSION [None]
  - ARTHRALGIA [None]
  - HYPERHIDROSIS [None]
  - DRUG WITHDRAWAL SYNDROME [None]
